FAERS Safety Report 11583633 (Version 3)
Quarter: 2015Q4

REPORT INFORMATION
  Report Type: Spontaneous
  Country: DK (occurrence: DK)
  Receive Date: 20151001
  Receipt Date: 20151209
  Transmission Date: 20160304
  Serious: Yes (Hospitalization)
  Sender: FDA-Public Use
  Company Number: DK-WATSON-2015-20526

PATIENT
  Age: 17 Year
  Sex: Male

DRUGS (2)
  1. ELVANSE [Suspect]
     Active Substance: LISDEXAMFETAMINE DIMESYLATE
     Indication: ATTENTION DEFICIT/HYPERACTIVITY DISORDER
     Dosage: 70 MG, UNKNOWN
     Route: 048
     Dates: start: 2014, end: 20150827
  2. SERTRALINE [Suspect]
     Active Substance: SERTRALINE HYDROCHLORIDE
     Indication: DEPRESSION
     Dosage: 1 DF, UNKNOWN
     Route: 048
     Dates: end: 20150827

REACTIONS (4)
  - Aphasia [Recovered/Resolved]
  - Cerebral infarction [Unknown]
  - Muscular weakness [Recovered/Resolved]
  - Reversible cerebral vasoconstriction syndrome [Unknown]

NARRATIVE: CASE EVENT DATE: 20150826
